FAERS Safety Report 6426430-4 (Version None)
Quarter: 2009Q4

REPORT INFORMATION
  Report Type: 
  Country: None (occurrence: None)
  Receive Date: 20091104
  Receipt Date: 20091022
  Transmission Date: 20100525
  Serious: Yes (Other)
  Sender: FDA-Public Use
  Company Number: PHHY2009RS45959

PATIENT
  Age: 67 Year
  Sex: Male

DRUGS (1)
  1. DIOVAN HCT [Suspect]
     Dosage: UNK
     Dates: end: 20091001

REACTIONS (1)
  - RHINITIS ALLERGIC [None]
